FAERS Safety Report 20305469 (Version 1)
Quarter: 2022Q1

REPORT INFORMATION
  Report Type: Spontaneous
  Country: US (occurrence: US)
  Receive Date: 20220106
  Receipt Date: 20220106
  Transmission Date: 20220423
  Serious: No
  Sender: FDA-Public Use
  Company Number: US-AMNEAL PHARMACEUTICALS-2021-AMRX-01888

PATIENT
  Age: 34 Year
  Sex: Female
  Weight: 66 kg

DRUGS (18)
  1. ACTIVELLA [Suspect]
     Active Substance: ESTRADIOL\NORETHINDRONE ACETATE
     Indication: Uterine leiomyoma
     Dosage: 1 DOSAGE FORM, DAILY
     Route: 048
     Dates: start: 20190514, end: 20200409
  2. ACTIVELLA [Suspect]
     Active Substance: ESTRADIOL\NORETHINDRONE ACETATE
     Dosage: 1 DOSAGE FORM, DAILY
     Route: 048
     Dates: start: 20200410, end: 20210309
  3. ELAGOLIX [Suspect]
     Active Substance: ELAGOLIX
     Indication: Uterine leiomyoma
     Dosage: 300 MILLIGRAM, 1 /DAY (ALONG WITH ACTIVELLA)
     Route: 048
     Dates: start: 20190514, end: 20200409
  4. ELAGOLIX [Suspect]
     Active Substance: ELAGOLIX
     Dosage: 300 MILLIGRAM; UNK
     Route: 048
     Dates: start: 20190514, end: 20200409
  5. ELAGOLIX [Suspect]
     Active Substance: ELAGOLIX
     Dosage: 300 MILLIGRAM, 1 /DAY
     Route: 048
     Dates: start: 20200410, end: 20210309
  6. ELAGOLIX [Suspect]
     Active Substance: ELAGOLIX
     Dosage: 300 MILLIGRAM, 1 /DAY (ALONG WITH ACTIVELLA)
     Route: 048
     Dates: start: 20200410, end: 20210309
  7. CALCIUM [Concomitant]
     Active Substance: CALCIUM
     Indication: Supplementation therapy
     Dosage: 1200 MILLIGRAM, DAILY
     Route: 048
     Dates: start: 2016
  8. IRON [Concomitant]
     Active Substance: IRON
     Indication: Anaemia
     Dosage: 65 MILLIGRAM, DAILY
     Route: 048
     Dates: start: 2016
  9. MAGNESIUM [Concomitant]
     Active Substance: MAGNESIUM
     Indication: Supplementation therapy
     Dosage: 250 MILLIGRAM, DAILY
     Route: 048
     Dates: start: 2016
  10. DIETARY SUPPLEMENT [Concomitant]
     Active Substance: DIETARY SUPPLEMENT
     Indication: Supplementation therapy
     Dosage: 600 MILLIGRAM, DAILY
     Route: 048
     Dates: start: 2016
  11. VITAMIN B COMPLEX [Concomitant]
     Active Substance: CYANOCOBALAMIN\DEXPANTHENOL\NIACINAMIDE\PYRIDOXINE HYDROCHLORIDE\RIBOFLAVIN 5^-PHOSPHATE SODIUM\THIA
     Indication: Supplementation therapy
     Dosage: 600 MILLIGRAM, DAILY
     Route: 048
     Dates: start: 2016
  12. VITAMIN C [Concomitant]
     Active Substance: ASCORBIC ACID
     Indication: Supplementation therapy
     Dosage: 500 MILLIGRAM, DAILY
     Route: 048
     Dates: start: 2016
  13. CHLORPHENIRAMINE MALEATE [Concomitant]
     Active Substance: CHLORPHENIRAMINE MALEATE
     Indication: Seasonal allergy
     Dosage: 4 MILLIGRAM, AS REQUIRED
     Route: 048
     Dates: start: 2017
  14. BUPROPION [Concomitant]
     Active Substance: BUPROPION
     Indication: Anxiety
     Dosage: 150 MILLIEQUIVALENT, DAILY
     Route: 048
     Dates: start: 2018
  15. HYDROXYZINE [Concomitant]
     Active Substance: HYDROXYZINE HYDROCHLORIDE
     Indication: Anxiety
     Dosage: 25 MILLIGRAM, DAILY
     Route: 048
     Dates: start: 2018
  16. LEXAPRO [Concomitant]
     Active Substance: ESCITALOPRAM OXALATE
     Indication: Anxiety
     Dosage: 10 MILLIGRAM, DAILY
     Route: 048
     Dates: start: 2018
  17. ESCITALOPRAM [Concomitant]
     Active Substance: ESCITALOPRAM OXALATE
     Indication: Depression
     Dosage: 10 MILLIGRAM, DAILY
     Route: 048
     Dates: start: 201907, end: 20200615
  18. ESCITALOPRAM [Concomitant]
     Active Substance: ESCITALOPRAM OXALATE
     Dosage: 20 MILLIGRAM, DAILY
     Route: 048
     Dates: start: 20200615

REACTIONS (1)
  - Bone density decreased [Not Recovered/Not Resolved]

NARRATIVE: CASE EVENT DATE: 20201222
